FAERS Safety Report 16300762 (Version 1)
Quarter: 2019Q2

REPORT INFORMATION
  Report Type: Spontaneous
  Country: US (occurrence: US)
  Receive Date: 20190510
  Receipt Date: 20190510
  Transmission Date: 20190711
  Serious: No
  Sender: FDA-Public Use
  Company Number: US-TEVA-2019-US-1039121

PATIENT
  Sex: Female

DRUGS (1)
  1. ALPRAZOLAM ACTAVIS TABLET [Suspect]
     Active Substance: ALPRAZOLAM
     Indication: HYPERTENSION
     Route: 065
     Dates: start: 201903

REACTIONS (5)
  - Stomatitis [Recovered/Resolved]
  - Gluten sensitivity [Recovered/Resolved]
  - Abdominal discomfort [Recovered/Resolved]
  - Gastrooesophageal reflux disease [Recovered/Resolved]
  - Diarrhoea [Recovered/Resolved]
